FAERS Safety Report 6115882-5 (Version None)
Quarter: 2009Q1

REPORT INFORMATION
  Report Type: 
  Country: None (occurrence: None)
  Receive Date: 20090311
  Receipt Date: 20090227
  Transmission Date: 20090719
  Serious: Yes (Hospitalization)
  Sender: FDA-Public Use
  Company Number: GXKR2009US02609

PATIENT
  Age: 51 Year
  Sex: Female

DRUGS (4)
  1. CEFUROXIME [Suspect]
     Indication: ANTIBIOTIC PROPHYLAXIS
     Dosage: 4.5 G (IN 3 DIVIDED DOSES)
  2. AMLODIPINE [Concomitant]
  3. ETACRYNIC ACID (ETACRYNIC ACID) [Concomitant]
  4. OXYCODONE HCL [Concomitant]

REACTIONS (2)
  - RENAL FAILURE ACUTE [None]
  - TUBULOINTERSTITIAL NEPHRITIS [None]
